FAERS Safety Report 21329810 (Version 1)
Quarter: 2022Q3

REPORT INFORMATION
  Report Type: Spontaneous
  Country: GB (occurrence: GB)
  Receive Date: 20220913
  Receipt Date: 20220913
  Transmission Date: 20221026
  Serious: Yes (Hospitalization, Disabling, Other)
  Sender: FDA-Public Use
  Company Number: GB-NOVARTISPH-NVSC2019GB098835

PATIENT
  Age: 18 Year
  Sex: Female

DRUGS (10)
  1. LEVETIRACETAM [Suspect]
     Active Substance: LEVETIRACETAM
     Indication: Status epilepticus
     Dosage: UNKNOWN
     Route: 065
  2. FENTANYL [Suspect]
     Active Substance: FENTANYL
     Indication: Status epilepticus
     Dosage: 200 MG/KG, QH
     Route: 065
  3. PROPOFOL [Suspect]
     Active Substance: PROPOFOL
     Indication: Status epilepticus
     Dosage: UNK
     Route: 065
  4. KETAMINE [Suspect]
     Active Substance: KETAMINE
     Indication: Status epilepticus
     Dosage: 2 MG/KG/HR, STARTED DAY 42
     Route: 065
  5. MIDAZOLAM [Suspect]
     Active Substance: MIDAZOLAM
     Indication: Status epilepticus
     Dosage: UP TO 20 MG/HR
     Route: 065
  6. THIOPENTAL SODIUM [Suspect]
     Active Substance: THIOPENTAL SODIUM
     Indication: Status epilepticus
     Dosage: UP TO 7 MG/KG/HR
     Route: 042
  7. METHYLPREDNISOLONE [Suspect]
     Active Substance: METHYLPREDNISOLONE
     Indication: Status epilepticus
     Dosage: UNKNOWN
     Route: 042
  8. PHENOBARBITAL [Suspect]
     Active Substance: PHENOBARBITAL
     Indication: Status epilepticus
     Dosage: UNKNOWN
     Route: 065
  9. PHENYTOIN [Suspect]
     Active Substance: PHENYTOIN
     Indication: Status epilepticus
     Dosage: UNKNOWN
     Route: 065
  10. LACOSAMIDE [Suspect]
     Active Substance: LACOSAMIDE
     Indication: Status epilepticus
     Dosage: UNKNOWN
     Route: 065

REACTIONS (17)
  - Partial seizures [Unknown]
  - Hypokalaemia [Unknown]
  - Ventricular hypokinesia [Unknown]
  - Intensive care unit delirium [Unknown]
  - Pelvic venous thrombosis [Unknown]
  - Optic neuropathy [Unknown]
  - Memory impairment [Unknown]
  - Liver function test abnormal [Unknown]
  - Infection [Unknown]
  - Cognitive disorder [Not Recovered/Not Resolved]
  - Euthyroid sick syndrome [Unknown]
  - Visual acuity reduced [Unknown]
  - Hypoglycaemia [Unknown]
  - Intensive care unit acquired weakness [Unknown]
  - Delirium [Unknown]
  - Deep vein thrombosis [Unknown]
  - Product use in unapproved indication [Unknown]
